FAERS Safety Report 9114914 (Version 1)
Quarter: 2013Q1

REPORT INFORMATION
  Report Type: Spontaneous
  Country: FR (occurrence: None)
  Receive Date: 20130123
  Receipt Date: 20130123
  Transmission Date: 20140127
  Serious: Yes (Other)
  Sender: FDA-Public Use
  Company Number: ALB-003-12-FR

PATIENT
  Age: 45 Year
  Sex: Female

DRUGS (1)
  1. ALBUNORM [Suspect]
     Indication: HYPOALBUMINAEMIA
     Route: 042
     Dates: start: 20120217, end: 20120217

REACTIONS (8)
  - Hypotension [None]
  - Respiratory alkalosis [None]
  - Hypokalaemia [None]
  - Hypoproteinaemia [None]
  - Headache [None]
  - Altered state of consciousness [None]
  - Subarachnoid haemorrhage [None]
  - Brain death [None]
